FAERS Safety Report 6312123-0 (Version None)
Quarter: 2009Q3

REPORT INFORMATION
  Report Type: 
  Country: None (occurrence: None)
  Receive Date: 20090817
  Receipt Date: 20090806
  Transmission Date: 20100115
  Serious: Yes (Other)
  Sender: FDA-Public Use
  Company Number: US-ELI_LILLY_AND_COMPANY-US200903007483

PATIENT
  Sex: Female
  Weight: 111 kg

DRUGS (3)
  1. BYETTA [Suspect]
     Indication: TYPE 2 DIABETES MELLITUS
     Dosage: 5 UG, 2/D
     Route: 058
     Dates: start: 20070813, end: 20070911
  2. LANTUS [Concomitant]
     Dosage: UNK, UNKNOWN
     Dates: end: 20070813
  3. PRANDIN [Concomitant]
     Dosage: UNK, UNKNOWN

REACTIONS (5)
  - NAUSEA [None]
  - NON-HODGKIN'S LYMPHOMA [None]
  - OFF LABEL USE [None]
  - PANCYTOPENIA [None]
  - SPLENOMEGALY [None]
